FAERS Safety Report 5893809-9 (Version None)
Quarter: 2008Q3

REPORT INFORMATION
  Report Type: 
  Country: None (occurrence: None)
  Receive Date: 20080923
  Receipt Date: 20071019
  Transmission Date: 20090109
  Serious: No
  Sender: FDA-Public Use
  Company Number: US-ASTRAZENECA-2007UW24502

PATIENT
  Sex: Female
  Weight: 49.9 kg

DRUGS (1)
  1. SEROQUEL [Suspect]
     Indication: ANXIETY
     Dosage: 50 MG ON DAY 1;  400 MG/DAY THEREAFTER
     Route: 048
     Dates: start: 20070801, end: 20070901

REACTIONS (6)
  - ALOPECIA [None]
  - FATIGUE [None]
  - HYPOTONIA [None]
  - INSULIN RESISTANCE [None]
  - THYROID DISORDER [None]
  - WEIGHT INCREASED [None]
